FAERS Safety Report 8786574 (Version 1)
Quarter: 2012Q4

REPORT INFORMATION
  Report Type: 
  Country: NL (occurrence: NL)
  Receive Date: 20120914
  Receipt Date: 20120914
  Transmission Date: 20130627
  Serious: Yes (Other)
  Sender: FDA-Public Use
  Company Number: PHHY2012NL078104

PATIENT
  Sex: Female

DRUGS (5)
  1. TOBI [Suspect]
     Indication: BRONCHIECTASIS
  2. ANTIBIOTICS [Concomitant]
  3. PREDNISONE [Concomitant]
  4. SERETIDE [Concomitant]
  5. SALBUTAMOL [Concomitant]

REACTIONS (4)
  - Asphyxia [Recovered/Resolved]
  - Dyspnoea [Recovered/Resolved]
  - Painful respiration [Recovered/Resolved]
  - Cough [Recovered/Resolved]
